FAERS Safety Report 19003029 (Version 4)
Quarter: 2021Q2

REPORT INFORMATION
  Report Type: Spontaneous
  Country: DE (occurrence: DE)
  Receive Date: 20210312
  Receipt Date: 20210505
  Transmission Date: 20210717
  Serious: Yes (Hospitalization, Other)
  Sender: FDA-Public Use
  Company Number: NVSC2020DE196110

PATIENT
  Sex: Female
  Weight: 122 kg

DRUGS (25)
  1. VALSACOR [Concomitant]
     Active Substance: VALSARTAN
     Dosage: UNK
     Route: 065
     Dates: start: 201707, end: 201710
  2. NUFAFLOQO [Concomitant]
     Indication: PRODUCT USED FOR UNKNOWN INDICATION
     Dosage: 200 UG, BID
     Route: 065
  3. AMOXI [Concomitant]
     Active Substance: AMOXICILLIN
     Indication: PRODUCT USED FOR UNKNOWN INDICATION
     Dosage: 1 DF, TID
     Route: 065
  4. VALSARTAN ? 1 A PHARMA PLUS 320 MG/25 MG FILMTABLETTEN [Suspect]
     Active Substance: HYDROCHLOROTHIAZIDE\VALSARTAN
     Dosage: 320 MG/ 25 MG (1, DAILY IN THE MORNING) QD
     Route: 065
  5. PENTAZOLE [Concomitant]
     Indication: PRODUCT USED FOR UNKNOWN INDICATION
     Dosage: 20 MG, QD (1X DAILY (MORNING))
     Route: 065
  6. NOVOPULMON [Concomitant]
     Active Substance: BUDESONIDE
     Dosage: 400, BID (2X DAILY (MORNING AND EVENING))
     Route: 055
     Dates: start: 201403, end: 201711
  7. VALSARTAN ? 1 A PHARMA PLUS 320 MG/25 MG FILMTABLETTEN [Suspect]
     Active Substance: HYDROCHLOROTHIAZIDE\VALSARTAN
     Dosage: 320 MG/ 25 MG
     Route: 065
     Dates: start: 201805, end: 20181015
  8. VALSACOR [Concomitant]
     Active Substance: VALSARTAN
     Dosage: UNK
     Route: 065
     Dates: start: 201810
  9. CANDESARTAN. [Concomitant]
     Active Substance: CANDESARTAN
     Indication: PRODUCT USED FOR UNKNOWN INDICATION
     Dosage: UNK
     Route: 065
  10. ODANSE [Concomitant]
     Indication: PRODUCT USED FOR UNKNOWN INDICATION
     Dosage: 1 PUFF
     Route: 065
  11. ALAVAC?S [Concomitant]
     Indication: PRODUCT USED FOR UNKNOWN INDICATION
     Dosage: UNK
     Route: 065
  12. VALSACOR [Concomitant]
     Active Substance: VALSARTAN
     Indication: HYPERTENSION
     Dosage: UNK
     Route: 065
     Dates: start: 201701, end: 201704
  13. RELVAR [Concomitant]
     Active Substance: FLUTICASONE FUROATE\VILANTEROL TRIFENATATE
     Indication: PRODUCT USED FOR UNKNOWN INDICATION
     Dosage: 184?G/22?G
     Route: 065
     Dates: start: 20180206
  14. RELVAR [Concomitant]
     Active Substance: FLUTICASONE FUROATE\VILANTEROL TRIFENATATE
     Dosage: 92?G/22?G (2X DAILY (MORNING AND EVENING))
     Route: 065
  15. RELVAR [Concomitant]
     Active Substance: FLUTICASONE FUROATE\VILANTEROL TRIFENATATE
     Dosage: 92?G/22?G (1X DAILY (MORNING))
     Route: 055
     Dates: start: 201712
  16. SPIRO [Concomitant]
     Indication: PRODUCT USED FOR UNKNOWN INDICATION
     Dosage: 12.5 UNK
     Route: 065
  17. VALSARTAN HEXAL [Suspect]
     Active Substance: VALSARTAN
     Indication: HYPERTENSION
     Dosage: 320 MG/ 25 MG
     Route: 065
     Dates: start: 20140801, end: 201609
  18. VALSARTAN. [Suspect]
     Active Substance: VALSARTAN
     Indication: PRODUCT USED FOR UNKNOWN INDICATION
     Dosage: 40 MG (1X DAILY (MORNING)
     Route: 065
  19. INDOMETHACIN. [Concomitant]
     Active Substance: INDOMETHACIN
     Indication: PRODUCT USED FOR UNKNOWN INDICATION
     Dosage: 75 MG, BID (2X DAILY (MORNING AND EVENING))
     Route: 065
  20. VALSARTAN ? 1 A PHARMA PLUS 320 MG/25 MG FILMTABLETTEN [Suspect]
     Active Substance: HYDROCHLOROTHIAZIDE\VALSARTAN
     Indication: HYPERTENSION
     Dosage: 320 MG/25 MG
     Route: 065
     Dates: start: 201401, end: 201408
  21. VALSARTAN ? 1 A PHARMA PLUS 320 MG/25 MG FILMTABLETTEN [Suspect]
     Active Substance: HYDROCHLOROTHIAZIDE\VALSARTAN
     Dosage: 320 MG/25 MGX 1/2 (2 DAILY IN THE MORNING AND EVENING) BID
     Route: 065
  22. AQUACORT [Concomitant]
     Indication: PRODUCT USED FOR UNKNOWN INDICATION
     Dosage: 50 UG
     Route: 065
  23. NOVOPULMON [Concomitant]
     Active Substance: BUDESONIDE
     Indication: PRODUCT USED FOR UNKNOWN INDICATION
     Dosage: 200 UG, BID (2X DAILY (MORNING AND EVENING))
     Route: 065
  24. LERCANIDIPINA [Concomitant]
     Active Substance: LERCANIDIPINE
     Indication: PRODUCT USED FOR UNKNOWN INDICATION
     Dosage: UNK, BID (2X DAILY (MORNING AND EVENING))
     Route: 065
  25. BECLOMETASON?CT [Concomitant]
     Indication: PRODUCT USED FOR UNKNOWN INDICATION
     Dosage: 0.1, BID (2X DAILY (MORNING AND EVENING))
     Route: 055
     Dates: end: 201403

REACTIONS (79)
  - Diabetes mellitus [Unknown]
  - Headache [Unknown]
  - Block vertebra [Unknown]
  - Arthropod bite [Unknown]
  - Trigeminal neuralgia [Recovered/Resolved]
  - Herpes simplex [Unknown]
  - Joint swelling [Unknown]
  - Pain [Recovered/Resolved]
  - Peripheral swelling [Unknown]
  - Radius fracture [Unknown]
  - Gastroenteritis salmonella [Unknown]
  - Myosclerosis [Unknown]
  - Neck pain [Recovering/Resolving]
  - Poor quality sleep [Not Recovered/Not Resolved]
  - Ear pain [Unknown]
  - Fatigue [Unknown]
  - Swelling face [Unknown]
  - Musculoskeletal chest pain [Recovering/Resolving]
  - Peak expiratory flow rate abnormal [Unknown]
  - Eye pain [Unknown]
  - Sinusitis [Unknown]
  - Synovial cyst [Unknown]
  - Fall [Unknown]
  - Skin lesion [Unknown]
  - Insomnia [Not Recovered/Not Resolved]
  - Dyspnoea exertional [Unknown]
  - Conjunctivitis allergic [Unknown]
  - Tendon disorder [Unknown]
  - Mental disorder [Unknown]
  - Tendonitis [Unknown]
  - Arthralgia [Unknown]
  - Spinal osteoarthritis [Unknown]
  - Plantar fasciitis [Unknown]
  - Ligament sprain [Unknown]
  - Herpes zoster [Unknown]
  - Dysaesthesia [Unknown]
  - Diarrhoea infectious [Unknown]
  - Emotional distress [Not Recovered/Not Resolved]
  - Lymphoedema [Unknown]
  - Asthma [Unknown]
  - Spinal disorder [Unknown]
  - Viral infection [Unknown]
  - Musculoskeletal discomfort [Unknown]
  - Dyspnoea [Unknown]
  - Facial pain [Unknown]
  - Respiratory tract infection [Unknown]
  - Product contamination [Unknown]
  - Dermatitis contact [Recovering/Resolving]
  - Ocular hyperaemia [Unknown]
  - Pulmonary function test decreased [Unknown]
  - Lice infestation [Unknown]
  - Upper respiratory tract infection [Unknown]
  - Listless [Unknown]
  - Nasopharyngitis [Unknown]
  - Candida infection [Unknown]
  - Dermatitis atopic [Unknown]
  - Blister [Unknown]
  - Arteriosclerosis [Unknown]
  - Movement disorder [Unknown]
  - Oropharyngeal pain [Unknown]
  - Otosalpingitis [Unknown]
  - Intercostal neuralgia [Recovering/Resolving]
  - Muscle rigidity [Unknown]
  - Conjunctival irritation [Unknown]
  - Upper limb fracture [Unknown]
  - General physical health deterioration [Unknown]
  - Conjunctivitis [Unknown]
  - Pain in extremity [Unknown]
  - Polyneuropathy [Unknown]
  - Peripheral venous disease [Unknown]
  - Oedema [Unknown]
  - Varicose ulceration [Unknown]
  - Vein disorder [Unknown]
  - Otitis externa [Unknown]
  - Cough [Unknown]
  - Eye inflammation [Unknown]
  - Carpal collapse [Unknown]
  - Contusion [Unknown]
  - Foot deformity [Unknown]

NARRATIVE: CASE EVENT DATE: 2014
